FAERS Safety Report 22616683 (Version 1)
Quarter: 2023Q2

REPORT INFORMATION
  Report Type: Report from Study
  Country: CA (occurrence: CA)
  Receive Date: 20230619
  Receipt Date: 20230619
  Transmission Date: 20230721
  Serious: Yes (Other)
  Sender: FDA-Public Use
  Company Number: CA-HLS-202301495

PATIENT
  Age: 42 Year
  Sex: Male

DRUGS (3)
  1. CLOZARIL [Suspect]
     Active Substance: CLOZAPINE
     Indication: Product used for unknown indication
     Route: 048
     Dates: start: 20141022
  2. TERAZOSIN [Concomitant]
     Active Substance: TERAZOSIN HYDROCHLORIDE
     Indication: Salivary hypersecretion
     Route: 065
  3. ATROPINE [Concomitant]
     Active Substance: ATROPINE
     Indication: Salivary hypersecretion
     Route: 065

REACTIONS (3)
  - Choking [Unknown]
  - Cough [Unknown]
  - Salivary hypersecretion [Unknown]

NARRATIVE: CASE EVENT DATE: 20230602
